FAERS Safety Report 8591443-3 (Version None)
Quarter: 2012Q3

REPORT INFORMATION
  Report Type: 
  Country: None (occurrence: None)
  Receive Date: 20120803
  Receipt Date: 20120803
  Transmission Date: 20120928
  Serious: No
  Sender: FDA-Public Use
  Company Number: None

PATIENT
  Sex: Male
  Weight: 113 kg

DRUGS (1)
  1. INTRON A [Suspect]
     Dosage: 250 MU
     Dates: end: 20111125

REACTIONS (1)
  - BLOOD CREATINE PHOSPHOKINASE INCREASED [None]
